FAERS Safety Report 8369499-2 (Version None)
Quarter: 2012Q2

REPORT INFORMATION
  Report Type: 
  Country: None (occurrence: None)
  Receive Date: 20120517
  Receipt Date: 20120517
  Transmission Date: 20120825
  Serious: Yes (Disabling, Other)
  Sender: FDA-Public Use
  Company Number: None

PATIENT
  Sex: Female
  Weight: 71.6683 kg

DRUGS (1)
  1. VIMPAT [Suspect]
     Indication: EPILEPSY
     Dosage: 100MG TWICE A DAY

REACTIONS (6)
  - FACE INJURY [None]
  - CONVULSION [None]
  - TOOTH FRACTURE [None]
  - DIZZINESS [None]
  - MUSCULAR WEAKNESS [None]
  - FALL [None]
